FAERS Safety Report 4806124-9 (Version None)
Quarter: 2005Q4

REPORT INFORMATION
  Report Type: 
  Country: None (occurrence: None)
  Receive Date: 20051021
  Receipt Date: 20050623
  Transmission Date: 20060501
  Serious: No
  Sender: FDA-Public Use
  Company Number: 200511863JP

PATIENT
  Age: 61 Year
  Sex: Male

DRUGS (1)
  1. LASIX [Suspect]
     Route: 042
     Dates: start: 20050602

REACTIONS (2)
  - PYREXIA [None]
  - SKIN EXFOLIATION [None]
